FAERS Safety Report 14803270 (Version 1)
Quarter: 2018Q2

REPORT INFORMATION
  Report Type: Spontaneous
  Country: GB (occurrence: GB)
  Receive Date: 20180425
  Receipt Date: 20180425
  Transmission Date: 20180711
  Serious: Yes (Other)
  Sender: FDA-Public Use
  Company Number: GB-TEVA-2018-GB-885837

PATIENT
  Age: 41 Year
  Sex: Female
  Weight: 75 kg

DRUGS (3)
  1. LOSARTAN. [Concomitant]
     Active Substance: LOSARTAN
     Dosage: 1 DOSAGE FORMS DAILY;
     Route: 065
     Dates: start: 20171106
  2. IPRATROPIUM [Suspect]
     Active Substance: IPRATROPIUM
     Route: 055
     Dates: start: 20171106, end: 20171130
  3. CETIRIZINE [Concomitant]
     Active Substance: CETIRIZINE HYDROCHLORIDE
     Dosage: 1 DOSAGE FORMS DAILY;
     Route: 065
     Dates: start: 20171106

REACTIONS (2)
  - Rash [Unknown]
  - Lip swelling [Recovered/Resolved]

NARRATIVE: CASE EVENT DATE: 20171106
